FAERS Safety Report 21415124 (Version 1)
Quarter: 2022Q4

REPORT INFORMATION
  Report Type: Spontaneous
  Country: ID (occurrence: ID)
  Receive Date: 20221006
  Receipt Date: 20221006
  Transmission Date: 20230113
  Serious: Yes (Hospitalization)
  Sender: FDA-Public Use
  Company Number: ID-NOVARTISPH-NVSC2022ID224170

PATIENT

DRUGS (1)
  1. SECUKINUMAB [Suspect]
     Active Substance: SECUKINUMAB
     Indication: Product used for unknown indication
     Dosage: UNK (STARTED 1 YEAR AND 6 MONTHS AGO)
     Route: 065

REACTIONS (1)
  - Pustular psoriasis [Recovering/Resolving]
